FAERS Safety Report 6438337-7 (Version None)
Quarter: 2009Q4

REPORT INFORMATION
  Report Type: 
  Country: None (occurrence: None)
  Receive Date: 20091112
  Receipt Date: 20091111
  Transmission Date: 20100525
  Serious: Yes (Death, Hospitalization, Other)
  Sender: FDA-Public Use
  Company Number: PHEH2007US00449

PATIENT
  Sex: Female
  Weight: 10.8 kg

DRUGS (26)
  1. ELIDEL [Suspect]
     Indication: DERMATITIS
     Route: 061
     Dates: start: 20030101
  2. ELIDEL [Suspect]
     Route: 061
     Dates: start: 20040212
  3. ELIDEL [Suspect]
     Route: 061
     Dates: start: 20040617
  4. CHEMOTHERAPEUTICS NOS [Concomitant]
  5. SOLU-MEDROL [Concomitant]
     Dosage: 1 MG / DAILY
     Dates: start: 20041128
  6. FLUCONAZOLE [Concomitant]
     Dosage: 60 MG / DAILY
  7. BENADRYL ^ACHE^ [Concomitant]
     Dosage: 12.5 MG / EVERY 4-6 HRS AS NEEDED
  8. DOLOPHINE HCL [Concomitant]
     Dosage: 700MG / DAILY
  9. HEPARIN [Concomitant]
     Dosage: UNK
  10. NORMAL SALINE [Concomitant]
     Dosage: 5 ML
  11. PENTAMIDINE ISETHIONATE [Concomitant]
     Dosage: UNK / MONTHLY
  12. DIPHENHYDRAMINE [Concomitant]
     Dosage: 50 MG
  13. SODIUM CHLORIDE [Concomitant]
     Dosage: UNK
  14. NEUPOGEN [Concomitant]
     Dosage: 300 MCG
  15. DEXTROSE [Concomitant]
     Dosage: UNK
  16. OMNICEF [Concomitant]
     Dosage: 125 MG
  17. ZOFRAN [Concomitant]
     Dosage: 4 MG
     Route: 048
  18. GLYCOLAX [Concomitant]
     Dosage: UNK
  19. ACETAMINOPHEN W/ CODEINE [Concomitant]
     Dosage: UNK
  20. HYDROCODONE BITARTRATE AND ACETAMINOPHEN [Concomitant]
     Dosage: UNK
  21. PREVACID [Concomitant]
     Dosage: UNK
  22. NORVASC [Concomitant]
     Dosage: 2.5 MG
  23. MERCAPTOPURINE [Concomitant]
     Dosage: 50 MG
  24. CIPRO [Concomitant]
     Dosage: UNK
  25. ZYRTEC [Concomitant]
     Dosage: UNK
  26. MOTRIN [Concomitant]

REACTIONS (26)
  - ACUTE MYELOID LEUKAEMIA [None]
  - BLAST CELLS PRESENT [None]
  - BLOOD CULTURE POSITIVE [None]
  - BRONCHIOLITIS [None]
  - CHLOROMA [None]
  - CONTUSION [None]
  - CORD BLOOD TRANSPLANT THERAPY [None]
  - CRANIAL NERVE PARALYSIS [None]
  - CULTURE STOOL POSITIVE [None]
  - FACIAL PALSY [None]
  - GASTRIC POLYPS [None]
  - LEUKOCYTOSIS [None]
  - MALNUTRITION [None]
  - MYRINGOTOMY [None]
  - OTITIS MEDIA [None]
  - PANCYTOPENIA [None]
  - PETECHIAE [None]
  - PYREXIA [None]
  - RESPIRATORY SYNCYTIAL VIRUS INFECTION [None]
  - RETCHING [None]
  - RHINORRHOEA [None]
  - SEBORRHOEA [None]
  - SKIN NODULE [None]
  - THROMBOCYTOPENIA [None]
  - UPPER RESPIRATORY TRACT CONGESTION [None]
  - WHEEZING [None]
